FAERS Safety Report 9502631 (Version 1)
Quarter: 2013Q3

REPORT INFORMATION
  Report Type: Spontaneous
  Country: GB (occurrence: GB)
  Receive Date: 20130906
  Receipt Date: 20130906
  Transmission Date: 20140515
  Serious: Yes (Other)
  Sender: FDA-Public Use
  Company Number: GB-ACCORD-019173

PATIENT
  Age: 64 Year
  Sex: Male

DRUGS (4)
  1. BENDROFLUMETHIAZIDE [Concomitant]
  2. LISINOPRIL [Suspect]
     Indication: HYPERTENSION
     Route: 048
     Dates: start: 20130814, end: 20130814
  3. PRAVASTATIN [Concomitant]
  4. ASPIRIN [Concomitant]

REACTIONS (3)
  - Muscular weakness [Recovered/Resolved]
  - Pain in extremity [Recovered/Resolved]
  - Gait disturbance [Unknown]
